FAERS Safety Report 4742646-7 (Version None)
Quarter: 2005Q3

REPORT INFORMATION
  Report Type: 
  Country: None (occurrence: None)
  Receive Date: 20050808
  Receipt Date: 20050727
  Transmission Date: 20060218
  Serious: Yes (Hospitalization)
  Sender: FDA-Public Use
  Company Number: US-2005-014928

PATIENT
  Age: 65 Year
  Sex: Female

DRUGS (2)
  1. BETASERON [Suspect]
     Indication: MULTIPLE SCLEROSIS
     Dosage: 6 MIU, EVERY 2D, SUBCUTANEOUS; SEE IMAGE
     Route: 058
     Dates: start: 20050316, end: 20050722
  2. BETASERON [Suspect]
     Indication: MULTIPLE SCLEROSIS
     Dosage: 6 MIU, EVERY 2D, SUBCUTANEOUS; SEE IMAGE
     Route: 058
     Dates: start: 20050725

REACTIONS (2)
  - BLOOD POTASSIUM ABNORMAL [None]
  - GALLBLADDER DISORDER [None]
